FAERS Safety Report 6557459-3 (Version None)
Quarter: 2010Q1

REPORT INFORMATION
  Report Type: 
  Country: None (occurrence: None)
  Receive Date: 20100129
  Receipt Date: 20100119
  Transmission Date: 20100710
  Serious: Yes (Life-Threatening, Hospitalization, Disabling)
  Sender: FDA-Public Use
  Company Number: HQWYE486206DEC06

PATIENT
  Sex: Female
  Weight: 60.84 kg

DRUGS (5)
  1. EFFEXOR XR [Suspect]
     Indication: MAJOR DEPRESSION
     Dosage: 37.5 TO 75 MG DAILY
     Route: 048
     Dates: start: 20060526, end: 20060711
  2. EFFEXOR XR [Suspect]
     Indication: ANXIETY
  3. EFFEXOR XR [Suspect]
     Indication: SOCIAL PHOBIA
  4. EFFEXOR XR [Suspect]
     Indication: GENERALISED ANXIETY DISORDER
  5. EFFEXOR XR [Suspect]
     Indication: PANIC REACTION

REACTIONS (9)
  - ABASIA [None]
  - FLUID INTAKE REDUCED [None]
  - HYPOPHAGIA [None]
  - MYXOEDEMA COMA [None]
  - PLATELET COUNT DECREASED [None]
  - RESPIRATORY FAILURE [None]
  - SEPSIS [None]
  - STEVENS-JOHNSON SYNDROME [None]
  - TOXIC EPIDERMAL NECROLYSIS [None]
